FAERS Safety Report 16257595 (Version 2)
Quarter: 2019Q4

REPORT INFORMATION
  Report Type: Spontaneous
  Country: CA (occurrence: CA)
  Receive Date: 20190430
  Receipt Date: 20191011
  Transmission Date: 20200122
  Serious: Yes (Other)
  Sender: FDA-Public Use
  Company Number: CA-BAYER-2019-082858

PATIENT
  Sex: Male

DRUGS (1)
  1. RESTORALAX [Suspect]
     Active Substance: POLYETHYLENE GLYCOL 3350
     Indication: CONSTIPATION
     Dosage: UNK
     Route: 048

REACTIONS (10)
  - Anger [Recovered/Resolved]
  - Blood pH increased [Recovered/Resolved]
  - Clostridium test positive [Recovered/Resolved]
  - Abnormal behaviour [Recovered/Resolved]
  - Speech disorder [Recovered/Resolved]
  - Aggression [Recovered/Resolved]
  - Megacolon [Recovered/Resolved]
  - Sleep terror [None]
  - Testicular pain [Recovered/Resolved]
  - Mood swings [Recovered/Resolved]
